FAERS Safety Report 20357802 (Version 2)
Quarter: 2022Q3

REPORT INFORMATION
  Report Type: Spontaneous
  Country: US (occurrence: US)
  Receive Date: 20220120
  Receipt Date: 20220729
  Transmission Date: 20221026
  Serious: No
  Sender: FDA-Public Use
  Company Number: US-NOVOPROD-846801

PATIENT
  Sex: Male

DRUGS (1)
  1. OZEMPIC [Suspect]
     Active Substance: SEMAGLUTIDE
     Indication: Product used for unknown indication
     Dosage: 0.5 MG
     Route: 058
     Dates: start: 20210630

REACTIONS (5)
  - Poor quality sleep [Unknown]
  - Ageusia [Unknown]
  - Abdominal discomfort [Unknown]
  - Weight decreased [Unknown]
  - Intentional product use issue [Unknown]
